FAERS Safety Report 8233850-4 (Version None)
Quarter: 2012Q1

REPORT INFORMATION
  Report Type: 
  Country: None (occurrence: None)
  Receive Date: 20120326
  Receipt Date: 20120320
  Transmission Date: 20120608
  Serious: No
  Sender: FDA-Public Use
  Company Number: US-COVIDIEN/TYCO HEALTHCARE/MALLINCKRODT-T201201127

PATIENT
  Age: 50 Year
  Sex: Female
  Weight: 113.38 kg

DRUGS (2)
  1. EXALGO [Suspect]
     Dosage: 8 MG, TOOK ANOTHER AT 2200
     Dates: start: 20120202
  2. EXALGO [Suspect]
     Dosage: 8 MG, TOOK ONE AT 1900

REACTIONS (1)
  - INAPPROPRIATE SCHEDULE OF DRUG ADMINISTRATION [None]
